FAERS Safety Report 21210883 (Version 1)
Quarter: 2022Q3

REPORT INFORMATION
  Report Type: Spontaneous
  Country: US (occurrence: US)
  Receive Date: 20220815
  Receipt Date: 20220815
  Transmission Date: 20221027
  Serious: No
  Sender: FDA-Public Use
  Company Number: US-SA-SAC20220809002217

PATIENT
  Age: 56 Year
  Sex: Male

DRUGS (2)
  1. DUPIXENT [Suspect]
     Active Substance: DUPILUMAB
     Indication: Dermatitis allergic
     Dosage: 300 MG/ML, QOW
     Route: 058
     Dates: start: 20220426
  2. SHINGRIX [Concomitant]
     Active Substance: RECOMBINANT VARICELLA ZOSTER VIRUS (VZV) GLYCOPROTEIN E
     Dosage: UNK

REACTIONS (11)
  - Dermatitis allergic [Unknown]
  - Condition aggravated [Unknown]
  - Sleep disorder [Unknown]
  - Eye irritation [Unknown]
  - Rash [Unknown]
  - Pain [Unknown]
  - Night sweats [Unknown]
  - Dry skin [Unknown]
  - Infection [Unknown]
  - Illness [Unknown]
  - Product use in unapproved indication [Unknown]

NARRATIVE: CASE EVENT DATE: 20220426
